FAERS Safety Report 18672642 (Version 1)
Quarter: 2020Q4

REPORT INFORMATION
  Report Type: Spontaneous
  Country: US (occurrence: US)
  Receive Date: 20201228
  Receipt Date: 20201228
  Transmission Date: 20210114
  Serious: No
  Sender: FDA-Public Use
  Company Number: US-PFIZER INC-2020412827

PATIENT
  Age: 86 Year
  Sex: Female

DRUGS (2)
  1. INLYTA [Suspect]
     Active Substance: AXITINIB
     Dosage: 5 MG (EVERY OTHER DAY)
     Dates: start: 20201022
  2. INLYTA [Suspect]
     Active Substance: AXITINIB
     Dosage: 5 MG
     Dates: start: 20201221

REACTIONS (4)
  - Diarrhoea [Unknown]
  - Fatigue [Unknown]
  - Off label use [Unknown]
  - Insomnia [Unknown]
